FAERS Safety Report 22931907 (Version 2)
Quarter: 2024Q2

REPORT INFORMATION
  Report Type: Spontaneous
  Country: US (occurrence: US)
  Receive Date: 20230912
  Receipt Date: 20240618
  Transmission Date: 20240716
  Serious: Yes (Death, Other)
  Sender: FDA-Public Use
  Company Number: US-APIL-2315308US

PATIENT
  Age: 88 Year
  Sex: Female

DRUGS (2)
  1. BYSTOLIC [Suspect]
     Active Substance: NEBIVOLOL HYDROCHLORIDE
     Indication: Product used for unknown indication
     Route: 048
  2. AMIODARONE [Concomitant]
     Active Substance: AMIODARONE
     Indication: Product used for unknown indication

REACTIONS (9)
  - Death [Fatal]
  - Myocardial infarction [Unknown]
  - Coronary artery occlusion [Unknown]
  - Cardiac failure [Unknown]
  - Chronic obstructive pulmonary disease [Unknown]
  - Glomerular filtration rate abnormal [Unknown]
  - Atrial fibrillation [Not Recovered/Not Resolved]
  - Electrocardiogram change [Unknown]
  - Therapeutic response unexpected [Unknown]
